FAERS Safety Report 8138430-7 (Version None)
Quarter: 2012Q1

REPORT INFORMATION
  Report Type: 
  Country: None (occurrence: None)
  Receive Date: 20120215
  Receipt Date: 20120203
  Transmission Date: 20120608
  Serious: Yes (Hospitalization)
  Sender: FDA-Public Use
  Company Number: JP-ROCHE-1010773

PATIENT
  Sex: Female
  Weight: 45 kg

DRUGS (12)
  1. RISUMIC [Concomitant]
     Route: 048
  2. WASSER V [Concomitant]
     Route: 048
  3. MUCOSTA [Concomitant]
     Route: 048
  4. FOSRENOL [Concomitant]
     Route: 048
  5. URSO 250 [Concomitant]
     Route: 048
  6. CINACALCET HYDROCHLORIDE [Concomitant]
     Route: 048
  7. LAC-B [Concomitant]
  8. MIRCERA [Suspect]
     Indication: NEPHROGENIC ANAEMIA
     Route: 042
  9. GLAKAY [Concomitant]
     Route: 048
  10. RABEPRAZOLE SODIUM [Concomitant]
     Route: 048
  11. ASPIRIN [Concomitant]
  12. GASTROM [Concomitant]
     Route: 048

REACTIONS (1)
  - PANCYTOPENIA [None]
